FAERS Safety Report 7444272-8 (Version None)
Quarter: 2011Q2

REPORT INFORMATION
  Report Type: 
  Country: None (occurrence: None)
  Receive Date: 20110429
  Receipt Date: 20110418
  Transmission Date: 20111010
  Serious: Yes (Other)
  Sender: FDA-Public Use
  Company Number: US-JNJFOC-20110408861

PATIENT
  Sex: Male
  Weight: 86.18 kg

DRUGS (8)
  1. DURAGESIC [Suspect]
     Indication: PAIN
     Route: 062
  2. PERCOCET [Concomitant]
     Indication: PAIN
     Route: 048
  3. PLAVIX [Concomitant]
     Indication: THROMBOSIS PROPHYLAXIS
     Route: 048
  4. LISINOPRIL [Concomitant]
     Indication: BLOOD PRESSURE
     Route: 048
  5. VITAMIN TAB [Concomitant]
     Indication: MEDICAL DIET
     Route: 048
  6. OMEPRAZOLE [Concomitant]
     Indication: GASTROINTESTINAL DISORDER
     Route: 048
  7. METOPROLOL SUCCINATE EXTENDED RELEASE [Concomitant]
     Indication: BLOOD PRESSURE
     Route: 048
  8. FENTANYL-100 [Suspect]
     Indication: PAIN
     Route: 062

REACTIONS (2)
  - SKIN DISCOLOURATION [None]
  - PERIPHERAL COLDNESS [None]
